FAERS Safety Report 6706977-3 (Version None)
Quarter: 2010Q2

REPORT INFORMATION
  Report Type: 
  Country: None (occurrence: None)
  Receive Date: 20100503
  Receipt Date: 20100426
  Transmission Date: 20101027
  Serious: Yes (Hospitalization)
  Sender: FDA-Public Use
  Company Number: GXKR2010FR04668

PATIENT
  Age: 75 Year
  Sex: Male

DRUGS (4)
  1. ACETYLSALICYLIC ACID SRT [Suspect]
     Indication: PERICARDIAL EFFUSION
     Dosage: 3 G/DAY
     Route: 065
  2. ACETYLSALICYLIC ACID SRT [Interacting]
     Dosage: 2 G/DAY
     Route: 065
  3. DEPAKINE CHRONO [Interacting]
     Indication: EPILEPSY
     Dosage: 2 DF/DAY
     Route: 065
  4. DEPAKINE CHRONO [Interacting]
     Dosage: 750 MG/DAY (HALF TABLETS)
     Route: 065

REACTIONS (6)
  - BEDRIDDEN [None]
  - COGNITIVE DISORDER [None]
  - DEMENTIA [None]
  - DRUG INTERACTION [None]
  - EXTRAPYRAMIDAL DISORDER [None]
  - NERVOUS SYSTEM DISORDER [None]
